FAERS Safety Report 10754294 (Version 1)
Quarter: 2015Q1

REPORT INFORMATION
  Report Type: Spontaneous
  Country: JP (occurrence: JP)
  Receive Date: 20150202
  Receipt Date: 20150202
  Transmission Date: 20150721
  Serious: Yes (Other)
  Sender: FDA-Public Use
  Company Number: JP-BAYER-2015-015037

PATIENT

DRUGS (1)
  1. ADALAT-L [Suspect]
     Active Substance: NIFEDIPINE
     Route: 048

REACTIONS (1)
  - Agranulocytosis [None]
